FAERS Safety Report 24774940 (Version 3)
Quarter: 2025Q4

REPORT INFORMATION
  Report Type: Spontaneous
  Country: US (occurrence: US)
  Receive Date: 20241226
  Receipt Date: 20251204
  Transmission Date: 20260118
  Serious: Yes (Other)
  Sender: ELI LILLY AND COMPANY
  Company Number: US-ELI_LILLY_AND_COMPANY-US202412015573

PATIENT
  Age: 62 Year
  Sex: Female
  Weight: 101.59 kg

DRUGS (8)
  1. TRULICITY [Suspect]
     Active Substance: DULAGLUTIDE
     Indication: Type 2 diabetes mellitus
     Dosage: 0.75 MG, WEEKLY (1/W)
     Route: 065
     Dates: start: 20220406, end: 20221115
  2. TRULICITY [Suspect]
     Active Substance: DULAGLUTIDE
     Indication: Weight control
  3. OZEMPIC [Suspect]
     Active Substance: SEMAGLUTIDE
     Indication: Weight control
     Dosage: 1 MG, WEEKLY (1/W)
     Route: 065
     Dates: start: 20210726
  4. OZEMPIC [Suspect]
     Active Substance: SEMAGLUTIDE
     Indication: Type 2 diabetes mellitus
     Dosage: 1.5 MG, WEEKLY (1/W)
     Route: 065
     Dates: start: 20211014, end: 202301
  5. OZEMPIC [Suspect]
     Active Substance: SEMAGLUTIDE
     Dosage: 0.5 MG, WEEKLY (1/W)
     Route: 065
     Dates: start: 20230601
  6. VICTOZA [Suspect]
     Active Substance: LIRAGLUTIDE
     Indication: Type 2 diabetes mellitus
     Dosage: 6 MG, DAILY
     Route: 065
     Dates: start: 20200218
  7. VICTOZA [Suspect]
     Active Substance: LIRAGLUTIDE
     Indication: Weight control
     Dosage: 1.5 MG, WEEKLY (1/W)
     Route: 065
     Dates: start: 20200320, end: 202303
  8. METFORMIN [Concomitant]
     Active Substance: METFORMIN HYDROCHLORIDE
     Indication: Type 2 diabetes mellitus

REACTIONS (9)
  - Gallbladder injury [Unknown]
  - Cholelithiasis [Recovered/Resolved]
  - Impaired gastric emptying [Not Recovered/Not Resolved]
  - Nausea [Not Recovered/Not Resolved]
  - Vomiting [Not Recovered/Not Resolved]
  - Cholecystitis [Recovered/Resolved]
  - Abdominal pain upper [Not Recovered/Not Resolved]
  - Emotional distress [Unknown]
  - Depression [Unknown]

NARRATIVE: CASE EVENT DATE: 20221001
